FAERS Safety Report 4600045-2 (Version None)
Quarter: 2005Q1

REPORT INFORMATION
  Report Type: 
  Country: None (occurrence: None)
  Receive Date: 20050307
  Receipt Date: 20050222
  Transmission Date: 20050727
  Serious: Yes (Hospitalization)
  Sender: FDA-Public Use
  Company Number: US-BRISTOL-MYERS SQUIBB COMPANY-12871877

PATIENT
  Age: 64 Year
  Sex: Male
  Weight: 81 kg

DRUGS (22)
  1. CARBOPLATIN [Suspect]
     Indication: ILL-DEFINED DISORDER
     Route: 042
     Dates: start: 20041110, end: 20041222
  2. PACLITAXEL [Suspect]
     Indication: ILL-DEFINED DISORDER
     Route: 042
     Dates: start: 20041110, end: 20041222
  3. ETOPOSIDE [Suspect]
     Indication: ILL-DEFINED DISORDER
     Dosage: DOSE:  50/100 ALTERNATING
     Route: 048
     Dates: start: 20041110, end: 20050101
  4. CEREBYX [Suspect]
     Indication: CONVULSION
     Dates: start: 20041229, end: 20041229
  5. PHENYTOIN SODIUM [Concomitant]
     Indication: CONVULSION
     Dosage: DOSING:  300MG X 2 NIGHTLY SWITCHED TO 400MG X 2 NIGHTLY ON AN UNKNOWN DATE
  6. SENOKOT [Concomitant]
     Indication: CONSTIPATION
     Dates: end: 20041231
  7. METOPROLOL SUCCINATE [Concomitant]
     Indication: HYPERTENSION
  8. ATORVASTATIN [Concomitant]
     Indication: HYPERLIPIDAEMIA
  9. TELMISARTAN [Concomitant]
     Indication: HYPERTENSION
  10. METOCLOPRAMIDE [Concomitant]
     Indication: ABDOMINAL DISCOMFORT
     Dates: end: 20041229
  11. DEXAMETHASONE [Concomitant]
     Indication: BRAIN OEDEMA
  12. LANSOPRAZOLE [Concomitant]
     Indication: GASTRIC DISORDER
  13. NOVOLIN [Concomitant]
     Indication: DIABETES MELLITUS
     Dosage: DOSE:  3 UNITS FOR EVERY 50}200 (AC+CS)
     Dates: end: 20041231
  14. INSULIN GLARGINE [Concomitant]
     Indication: DIABETES MELLITUS
     Dosage: DOSE:  60 UNITS X 2 NIGHTLY CHANGED TO 40 UNITS X 2 NIGHTLY ON 29-DEC-2004
  15. PROMETHAZINE [Concomitant]
     Indication: VOMITING
     Dosage: DOSE:  CHANGED TO 25-50MG 24HR/PRN ON 29-DEC-2004
  16. ZOLPIDEM TARTRATE [Concomitant]
     Indication: SLEEP DISORDER
     Dates: end: 20041229
  17. HYDROCODONE [Concomitant]
     Indication: PAIN
     Dates: end: 20041229
  18. ONDANSETRON HCL [Concomitant]
     Indication: VOMITING
     Dates: end: 20041229
  19. NITROGLYCERIN [Concomitant]
     Indication: ANGINA PECTORIS
     Dates: end: 20041229
  20. TEMAZEPAM [Concomitant]
     Indication: SLEEP DISORDER
     Dates: start: 20041229, end: 20041231
  21. PROPACET 100 [Concomitant]
     Indication: ANALGESIC EFFECT
     Dates: start: 20041229, end: 20041231
  22. PETHIDINE HYDROCHLORIDE [Concomitant]
     Indication: CHILLS
     Dates: start: 20041229, end: 20041231

REACTIONS (5)
  - ASTHENIA [None]
  - DEHYDRATION [None]
  - DIZZINESS [None]
  - DYSKINESIA [None]
  - HYPOTENSION [None]
